FAERS Safety Report 7230736-9 (Version None)
Quarter: 2011Q1

REPORT INFORMATION
  Report Type: 
  Country: None (occurrence: None)
  Receive Date: 20110118
  Receipt Date: 20110105
  Transmission Date: 20110831
  Serious: Yes (Hospitalization)
  Sender: FDA-Public Use
  Company Number: US-SANOFI-AVENTIS-2010SA076602

PATIENT
  Age: 85 Year
  Sex: Female

DRUGS (12)
  1. LITHIUM [Concomitant]
     Dates: start: 20050701
  2. NEXIUM [Concomitant]
     Dates: start: 20090401
  3. MULTAQ [Suspect]
     Indication: ATRIAL FIBRILLATION
     Route: 065
     Dates: start: 20101001, end: 20101215
  4. LEVOTHYROXINE [Concomitant]
     Dates: start: 20050301
  5. ALLOPURINOL [Concomitant]
  6. SODIUM BICARBONATE [Suspect]
     Route: 065
     Dates: end: 20101125
  7. VYTORIN [Concomitant]
     Dates: start: 20070101
  8. BENICAR HCT [Concomitant]
  9. COREG [Concomitant]
  10. AMLODIPINE [Concomitant]
     Dates: start: 20050301
  11. FISH OIL [Concomitant]
  12. RESTORIL [Concomitant]
     Dates: start: 20050101

REACTIONS (2)
  - URINARY TRACT INFECTION [None]
  - CARDIAC FAILURE CONGESTIVE [None]
